FAERS Safety Report 5072977-5 (Version None)
Quarter: 2006Q3

REPORT INFORMATION
  Report Type: 
  Country: None (occurrence: None)
  Receive Date: 20060802
  Receipt Date: 20060720
  Transmission Date: 20061208
  Serious: Yes (Death, Hospitalization, Other)
  Sender: FDA-Public Use
  Company Number: GB-2006-004752

PATIENT
  Age: 68 Year
  Sex: Male

DRUGS (1)
  1. CAMPATH [Suspect]

REACTIONS (1)
  - ATRIOVENTRICULAR BLOCK THIRD DEGREE [None]
